FAERS Safety Report 9440730 (Version 3)
Quarter: 2013Q3

REPORT INFORMATION
  Report Type: Spontaneous
  Country: DE (occurrence: DE)
  Receive Date: 20130805
  Receipt Date: 20130826
  Transmission Date: 20140515
  Serious: Yes (Death, Life-Threatening, Hospitalization)
  Sender: FDA-Public Use
  Company Number: DE-B.I. PHARMACEUTICALS,INC./RIDGEFIELD-2013-BI-23349DE

PATIENT
  Age: 81 Year
  Sex: Female
  Weight: 65 kg

DRUGS (9)
  1. PRADAXA [Suspect]
     Indication: ATRIAL FIBRILLATION
     Dosage: 220 MG
     Dates: start: 20130720, end: 20130728
  2. ASS [Concomitant]
     Dosage: 100 MG
     Route: 048
     Dates: start: 20130710
  3. CLOPIDOGREL [Concomitant]
     Dosage: 75 MG
     Route: 048
     Dates: start: 20130710
  4. BISOPROLOL [Concomitant]
  5. RAMPIPRIL [Concomitant]
  6. SIMVASTATIN [Concomitant]
  7. TOREM [Concomitant]
  8. EUTHYROX [Concomitant]
  9. LAMOTRIGIN [Concomitant]

REACTIONS (12)
  - Shock haemorrhagic [Fatal]
  - Respiratory failure [Fatal]
  - Haemothorax [Unknown]
  - Pneumonia [Unknown]
  - Pyrexia [Unknown]
  - General physical health deterioration [Unknown]
  - Status epilepticus [Unknown]
  - Blood calcium decreased [Unknown]
  - Chest pain [Unknown]
  - General physical health deterioration [Unknown]
  - Haemoglobin decreased [Unknown]
  - Blood pressure decreased [Unknown]
